FAERS Safety Report 6755809-6 (Version None)
Quarter: 2010Q2

REPORT INFORMATION
  Report Type: 
  Country: None (occurrence: None)
  Receive Date: 20100604
  Receipt Date: 20100526
  Transmission Date: 20101027
  Serious: Yes (Hospitalization)
  Sender: FDA-Public Use
  Company Number: GB-ASTRAZENECA-2010SE25276

PATIENT
  Age: 53 Year
  Sex: Female

DRUGS (15)
  1. OMEPRAZOLE [Suspect]
     Indication: HIATUS HERNIA
     Route: 048
     Dates: end: 20100201
  2. OMEPRAZOLE [Suspect]
     Indication: GASTROOESOPHAGEAL REFLUX DISEASE
     Route: 048
     Dates: end: 20100201
  3. ATENOLOL [Concomitant]
  4. CARBIMAZOLE [Concomitant]
  5. FEXOFENADINE [Concomitant]
  6. DOMPERIDONE [Concomitant]
  7. LOPERAMIDE [Concomitant]
  8. SODIUM ALGINATE [Concomitant]
     Dosage: AS REQUIRED
  9. POTASSIUM BICARBONATE [Concomitant]
     Dosage: AS REQUIRED
     Route: 048
  10. FLUTICASONE PROPIONATE [Concomitant]
     Route: 045
  11. BETAMETHASONE [Concomitant]
  12. CALCIOS [Concomitant]
     Indication: HYPOCALCAEMIA
     Route: 048
  13. ALPHA CALCIDOL [Concomitant]
     Indication: HYPOCALCAEMIA
  14. MAGNESIUM GLYCEROPHOSPHATE [Concomitant]
     Indication: HYPOMAGNESAEMIA
  15. FLUOXETINE [Concomitant]

REACTIONS (1)
  - BLOOD MAGNESIUM DECREASED [None]
